FAERS Safety Report 8823241 (Version 1)
Quarter: 2012Q4

REPORT INFORMATION
  Report Type: 
  Country: US (occurrence: US)
  Receive Date: 20121003
  Receipt Date: 20121003
  Transmission Date: 20130627
  Serious: Yes (Hospitalization, Disabling, Other)
  Sender: FDA-Public Use
  Company Number: US-GLAXOSMITHKLINE-A0991511A

PATIENT
  Age: 56 Year
  Sex: Female

DRUGS (1)
  1. FLOLAN [Suspect]
     Indication: PULMONARY HYPERTENSION
     Dosage: 28.5NGKM Continuous
     Route: 042
     Dates: start: 20080402

REACTIONS (10)
  - Pneumonia [Recovered/Resolved]
  - Pulmonary oedema [Unknown]
  - Atelectasis [Unknown]
  - Lung consolidation [Recovered/Resolved]
  - Cardiomegaly [Recovered/Resolved]
  - Pyrexia [Recovered/Resolved]
  - Full blood count abnormal [Unknown]
  - Prothrombin time abnormal [Unknown]
  - Laboratory test abnormal [Unknown]
  - International normalised ratio abnormal [Unknown]
